FAERS Safety Report 4799892-6 (Version None)
Quarter: 2005Q4

REPORT INFORMATION
  Report Type: 
  Country: None (occurrence: None)
  Receive Date: 20051013
  Receipt Date: 20050927
  Transmission Date: 20060501
  Serious: Yes (Hospitalization)
  Sender: FDA-Public Use
  Company Number: FR_050907203

PATIENT
  Age: 70 Year
  Sex: Male

DRUGS (3)
  1. GEMZAR [Suspect]
     Indication: BRONCHIAL CARCINOMA
     Dosage: 2500 MG/1 OTHER
     Route: 050
     Dates: start: 20050811, end: 20050819
  2. EMLA [Concomitant]
  3. OMEPRAZOLE [Concomitant]

REACTIONS (3)
  - DYSPNOEA [None]
  - PYREXIA [None]
  - URTICARIA [None]
